FAERS Safety Report 6721287-6 (Version None)
Quarter: 2010Q2

REPORT INFORMATION
  Report Type: 
  Country: None (occurrence: None)
  Receive Date: 20100512
  Receipt Date: 20100430
  Transmission Date: 20101027
  Serious: Yes (Death, Congenital Anomaly)
  Sender: FDA-Public Use
  Company Number: US-MYLANLABS-2010S1007954

PATIENT

DRUGS (3)
  1. SOTRET [Suspect]
     Route: 064
  2. AMNESTEEM [Suspect]
     Route: 064
  3. AMNESTEEM [Suspect]
     Route: 064

REACTIONS (6)
  - CARDIOMEGALY [None]
  - CONGENITAL BLADDER ANOMALY [None]
  - DRUG EXPOSURE DURING PREGNANCY [None]
  - FACIAL ASYMMETRY [None]
  - PULMONARY HYPOPLASIA [None]
  - STILLBIRTH [None]
